FAERS Safety Report 9788591 (Version 1)
Quarter: 2013Q4

REPORT INFORMATION
  Report Type: Spontaneous
  Country: AU (occurrence: AU)
  Receive Date: 20131230
  Receipt Date: 20131230
  Transmission Date: 20140711
  Serious: No
  Sender: FDA-Public Use
  Company Number: AU-MERCK-1310AUS015139

PATIENT
  Age: 64 Year
  Sex: Male

DRUGS (1)
  1. EZETROL [Suspect]
     Indication: PRODUCT USED FOR UNKNOWN INDICATION
     Dosage: 10 MG, QD

REACTIONS (3)
  - Dyspepsia [Unknown]
  - Dysphonia [Unknown]
  - Dyspnoea [Unknown]
